FAERS Safety Report 26093997 (Version 1)
Quarter: 2025Q4

REPORT INFORMATION
  Report Type: Other
  Country: US (occurrence: US)
  Receive Date: 20251126
  Receipt Date: 20251126
  Transmission Date: 20260117
  Serious: Yes (Other)
  Sender: TRAVERE THERAPEUTICS
  Company Number: US-TRAVERE-2025TVT02262

PATIENT
  Age: 61 Year
  Sex: Female

DRUGS (1)
  1. FILSPARI [Suspect]
     Active Substance: SPARSENTAN
     Indication: IgA nephropathy
     Route: 048
     Dates: start: 20250722

REACTIONS (3)
  - Pulmonary oedema [Unknown]
  - Fluid retention [Unknown]
  - Renal impairment [Unknown]

NARRATIVE: CASE EVENT DATE: 20251001
